FAERS Safety Report 4324962-6 (Version None)
Quarter: 2004Q1

REPORT INFORMATION
  Report Type: 
  Country: None (occurrence: None)
  Receive Date: 20040324
  Receipt Date: 20040211
  Transmission Date: 20041129
  Serious: Yes (Hospitalization)
  Sender: FDA-Public Use
  Company Number: M2004.0159

PATIENT
  Age: 45 Year
  Sex: Female
  Weight: 70 kg

DRUGS (1)
  1. AMOXICILLIN AND CLAVULANATE [Suspect]
     Indication: PNEUMONIA
     Dosage: 2 G TDS

REACTIONS (6)
  - BACK PAIN [None]
  - CHROMATURIA [None]
  - CRYSTALLURIA [None]
  - HAEMATURIA [None]
  - KIDNEY ENLARGEMENT [None]
  - RENAL FAILURE ACUTE [None]
